FAERS Safety Report 4718766-X (Version None)
Quarter: 2005Q3

REPORT INFORMATION
  Report Type: 
  Country: None (occurrence: None)
  Receive Date: 20050719
  Receipt Date: 20050705
  Transmission Date: 20060218
  Serious: Yes (Hospitalization)
  Sender: FDA-Public Use
  Company Number: A109802

PATIENT
  Age: 45 Year
  Sex: Female
  Weight: 68.0396 kg

DRUGS (11)
  1. GEODON [Suspect]
     Indication: ANXIETY
     Dosage: 40 MG (20 MG, 2 IN 1 D), ORAL
     Route: 048
     Dates: start: 20010328, end: 20010415
  2. GEODON [Suspect]
     Indication: DEPRESSION
     Dosage: 40 MG (20 MG, 2 IN 1 D), ORAL
     Route: 048
     Dates: start: 20010328, end: 20010415
  3. LITHIUM CARBONATE [Suspect]
     Indication: ILL-DEFINED DISORDER
     Dosage: 1200 MG, ORAL
     Route: 048
     Dates: start: 20010327, end: 20010419
  4. SEROQUEL [Suspect]
     Indication: ILL-DEFINED DISORDER
     Dosage: 200 MG, ORAL
     Route: 048
     Dates: start: 20010404, end: 20010425
  5. PROPRANOLOL [Suspect]
     Indication: ILL-DEFINED DISORDER
     Dosage: 60 MG, ORAL
     Route: 048
     Dates: start: 20010404, end: 20010426
  6. PAXIL [Concomitant]
  7. NORTRIPTYLINE HCL [Concomitant]
  8. THIAMINE (THIAMINE) [Concomitant]
  9. FOLIC ACID [Concomitant]
  10. CLONAZEPAM [Concomitant]
  11. BENADRYL [Concomitant]

REACTIONS (35)
  - AGEUSIA [None]
  - AGITATION [None]
  - AKATHISIA [None]
  - ASTHENIA [None]
  - COGNITIVE DISORDER [None]
  - COGWHEEL RIGIDITY [None]
  - CONTUSION [None]
  - COORDINATION ABNORMAL [None]
  - DRUG INEFFECTIVE [None]
  - DYSPHAGIA [None]
  - DYSTONIA [None]
  - EXTRAPYRAMIDAL DISORDER [None]
  - FALL [None]
  - HALLUCINATION [None]
  - HALLUCINATION, AUDITORY [None]
  - HOT FLUSH [None]
  - HYPERTROPHY [None]
  - HYPOMANIA [None]
  - INCONTINENCE [None]
  - LOGORRHOEA [None]
  - MOVEMENT DISORDER [None]
  - MUSCLE RIGIDITY [None]
  - MUSCLE SPASMS [None]
  - MUSCLE TWITCHING [None]
  - MYOCLONUS [None]
  - NEUROLEPTIC MALIGNANT SYNDROME [None]
  - ORAL INTAKE REDUCED [None]
  - PARKINSONIAN GAIT [None]
  - RESTLESSNESS [None]
  - SEROTONIN SYNDROME [None]
  - SLEEP DISORDER [None]
  - SLEEP TALKING [None]
  - TONGUE DISCOLOURATION [None]
  - TONGUE DISORDER [None]
  - TREMOR [None]
